FAERS Safety Report 12161908 (Version 3)
Quarter: 2019Q4

REPORT INFORMATION
  Report Type: Report from Study
  Country: US (occurrence: US)
  Receive Date: 20160309
  Receipt Date: 20191022
  Transmission Date: 20200122
  Serious: Yes (Hospitalization, Disabling, Congenital Anomaly, Other)
  Sender: FDA-Public Use
  Company Number: US-ACCORD-038547

PATIENT
  Sex: Male
  Weight: 3.2 kg

DRUGS (1)
  1. METHOTREXATE. [Suspect]
     Active Substance: METHOTREXATE
     Indication: ABORTION INDUCED
     Route: 064

REACTIONS (14)
  - Clinodactyly [Recovering/Resolving]
  - Talipes [Recovering/Resolving]
  - Foetal methotrexate syndrome [Unknown]
  - Synostosis [Recovering/Resolving]
  - Stenosis [Recovering/Resolving]
  - Joint contracture [Recovering/Resolving]
  - Craniosynostosis [Recovered/Resolved]
  - Spinal disorder [Not Recovered/Not Resolved]
  - Pyelocaliectasis [Recovering/Resolving]
  - Foetal exposure during pregnancy [Unknown]
  - Poor feeding infant [Unknown]
  - Limb reduction defect [Recovering/Resolving]
  - Radioulnar synostosis [Recovering/Resolving]
  - Bradycardia foetal [Unknown]
